FAERS Safety Report 18061141 (Version 1)
Quarter: 2020Q3

REPORT INFORMATION
  Report Type: Spontaneous
  Country: US (occurrence: US)
  Receive Date: 20200723
  Receipt Date: 20200723
  Transmission Date: 20201103
  Serious: Yes (Other)
  Sender: FDA-Public Use
  Company Number: US-AMGEN-USASP2020115827

PATIENT
  Sex: Female

DRUGS (3)
  1. PROLIA [Suspect]
     Active Substance: DENOSUMAB
     Indication: OSTEOPOROSIS
     Dosage: UNK
     Route: 065
  2. CALCIUM [Concomitant]
     Active Substance: CALCIUM
  3. VITAMIN D [ERGOCALCIFEROL] [Concomitant]
     Active Substance: ERGOCALCIFEROL

REACTIONS (12)
  - Hip arthroplasty [Unknown]
  - Arthralgia [Unknown]
  - Tooth erosion [Unknown]
  - Gingival disorder [Unknown]
  - Inappropriate schedule of product administration [Unknown]
  - Femur fracture [Unknown]
  - Knee arthroplasty [Unknown]
  - Tooth repair [Unknown]
  - Medical device implantation [Unknown]
  - Musculoskeletal discomfort [Unknown]
  - Injection site pain [Unknown]
  - Fall [Unknown]
